FAERS Safety Report 19476498 (Version 2)
Quarter: 2021Q3

REPORT INFORMATION
  Report Type: Spontaneous
  Country: JP (occurrence: JP)
  Receive Date: 20210630
  Receipt Date: 20210715
  Transmission Date: 20211014
  Serious: Yes (Other)
  Sender: FDA-Public Use
  Company Number: JP-JNJFOC-20210666055

PATIENT
  Age: 43 Year
  Sex: Female

DRUGS (19)
  1. INSULIN [Concomitant]
     Active Substance: INSULIN NOS
     Dosage: 10?10?10?22
     Route: 051
     Dates: start: 201708
  2. INSULIN [Concomitant]
     Active Substance: INSULIN NOS
     Dosage: 6?6?6?14
     Route: 051
     Dates: start: 201710
  3. METFORMIN HYDROCHLORIDE. [Concomitant]
     Active Substance: METFORMIN HYDROCHLORIDE
     Dosage: 1000 MILLIGRAM, QD
     Route: 065
     Dates: start: 201401
  4. INSULIN [Concomitant]
     Active Substance: INSULIN NOS
     Dosage: 18?14?16
     Route: 051
     Dates: start: 2006
  5. INSULIN [Concomitant]
     Active Substance: INSULIN NOS
     Dosage: 20?16?16?14
     Route: 051
     Dates: start: 201001
  6. INSULIN [Concomitant]
     Active Substance: INSULIN NOS
     Dosage: 12?12?12?28
     Route: 051
     Dates: start: 201707
  7. INSULIN [Concomitant]
     Active Substance: INSULIN NOS
     Dosage: 8?8?8?18
     Route: 051
     Dates: start: 201709
  8. INSULIN [Concomitant]
     Active Substance: INSULIN NOS
     Dosage: 5?5?5?12
     Route: 051
     Dates: start: 201711
  9. AMARYL [Concomitant]
     Active Substance: GLIMEPIRIDE
     Dosage: 1 MILLIGRAM, QD
     Route: 065
     Dates: start: 201301, end: 201707
  10. JANUVIA [Concomitant]
     Active Substance: SITAGLIPTIN PHOSPHATE
     Dosage: UNK
     Route: 048
     Dates: start: 201201
  11. CANAGLIFLOZIN [Suspect]
     Active Substance: CANAGLIFLOZIN
     Indication: PRODUCT USED FOR UNKNOWN INDICATION
     Dosage: UNK
     Route: 048
     Dates: start: 201503
  12. INSULIN [Concomitant]
     Active Substance: INSULIN NOS
     Dosage: 20?18?18?34
     Route: 051
     Dates: start: 201201
  13. INSULIN [Concomitant]
     Active Substance: INSULIN NOS
     Dosage: 18?14?16?6
     Route: 051
     Dates: start: 200901
  14. INSULIN [Concomitant]
     Active Substance: INSULIN NOS
     Dosage: 20?16?16?26
     Route: 051
     Dates: start: 201101
  15. INSULIN [Concomitant]
     Active Substance: INSULIN NOS
     Dosage: 20?20?20?40
     Route: 051
     Dates: start: 201401
  16. INSULIN [Concomitant]
     Active Substance: INSULIN NOS
     Dosage: 16?16?16?34
     Route: 051
     Dates: start: 201706
  17. INSULIN [Concomitant]
     Active Substance: INSULIN NOS
     Dosage: 18?14?16?4
     Route: 051
     Dates: start: 200701
  18. INSULIN [Concomitant]
     Active Substance: INSULIN NOS
     Dosage: 20?20?20?40
     Route: 051
     Dates: start: 201301
  19. AZOSEMIDE [Concomitant]
     Active Substance: AZOSEMIDE
     Dosage: UNK
     Route: 065
     Dates: start: 201611

REACTIONS (1)
  - Retinal haemorrhage [Unknown]

NARRATIVE: CASE EVENT DATE: 201705
